FAERS Safety Report 10275604 (Version 1)
Quarter: 2014Q3

REPORT INFORMATION
  Report Type: Spontaneous
  Country: US (occurrence: None)
  Receive Date: 20140701
  Receipt Date: 20140701
  Transmission Date: 20150326
  Serious: Yes (Death, Life-Threatening)
  Sender: FDA-Public Use
  Company Number: None

PATIENT
  Age: 84 Year
  Sex: Female
  Weight: 61.2 kg

DRUGS (1)
  1. WARFARIN 4 MG [Suspect]
     Active Substance: WARFARIN
     Indication: CEREBRAL ARTERY OCCLUSION

REACTIONS (7)
  - Hypotension [None]
  - Respiratory failure [None]
  - Septic shock [None]
  - Depressed level of consciousness [None]
  - Haemorrhage intracranial [None]
  - Tachycardia [None]
  - Pneumonia [None]

NARRATIVE: CASE EVENT DATE: 20140603
